FAERS Safety Report 11382670 (Version 1)
Quarter: 2015Q3

REPORT INFORMATION
  Report Type: Spontaneous
  Country: US (occurrence: US)
  Receive Date: 20150814
  Receipt Date: 20150814
  Transmission Date: 20151125
  Serious: Yes (Other)
  Sender: FDA-Public Use
  Company Number: US-ELI_LILLY_AND_COMPANY-US201508003376

PATIENT
  Sex: Female

DRUGS (1)
  1. CYMBALTA [Suspect]
     Active Substance: DULOXETINE HYDROCHLORIDE
     Indication: PRODUCT USED FOR UNKNOWN INDICATION

REACTIONS (14)
  - Drug withdrawal syndrome [Unknown]
  - Paraesthesia [Unknown]
  - Joint swelling [Unknown]
  - Loss of consciousness [Unknown]
  - Hyperhidrosis [Unknown]
  - Memory impairment [Unknown]
  - Arthralgia [Unknown]
  - Confusional state [Unknown]
  - Skin discolouration [Unknown]
  - Rash [Unknown]
  - Fall [Unknown]
  - Balance disorder [Unknown]
  - Fatigue [Unknown]
  - Abdominal pain upper [Unknown]
